FAERS Safety Report 15641181 (Version 2)
Quarter: 2018Q4

REPORT INFORMATION
  Report Type: Report from Study
  Country: US (occurrence: US)
  Receive Date: 20181120
  Receipt Date: 20181218
  Transmission Date: 20190205
  Serious: Yes (Death, Hospitalization, Other)
  Sender: FDA-Public Use
  Company Number: US-GILEAD-2018-0374879

PATIENT
  Age: 80 Year
  Sex: Female

DRUGS (3)
  1. FERROUS SULFATE. [Concomitant]
     Active Substance: FERROUS SULFATE
  2. AMBRISENTAN [Suspect]
     Active Substance: AMBRISENTAN
     Indication: PRODUCT USED FOR UNKNOWN INDICATION
     Dosage: 10 MG, QD
     Route: 065
     Dates: start: 20170216
  3. LACTULOSE. [Concomitant]
     Active Substance: LACTULOSE

REACTIONS (5)
  - Death [Fatal]
  - Pulmonary hypertension [Unknown]
  - Oedema [Unknown]
  - Dyspnoea [Unknown]
  - Renal neoplasm [Unknown]

NARRATIVE: CASE EVENT DATE: 20181106
